FAERS Safety Report 7249130-X (Version None)
Quarter: 2011Q1

REPORT INFORMATION
  Report Type: 
  Country: None (occurrence: None)
  Receive Date: 20110128
  Receipt Date: 20101129
  Transmission Date: 20110831
  Serious: Yes (Hospitalization)
  Sender: FDA-Public Use
  Company Number: JP-BAYER-2010-001230

PATIENT
  Sex: Male
  Weight: 60 kg

DRUGS (8)
  1. SORAFENIB (RAF KINASE INHIBITOR) [Suspect]
     Indication: HEPATIC NEOPLASM MALIGNANT
     Dosage: 400 MG, QD
     Route: 048
     Dates: start: 20100311, end: 20100317
  2. ALBUMIN (HUMAN) [Concomitant]
     Route: 042
  3. GASTER D [Concomitant]
     Route: 048
  4. SORAFENIB (RAF KINASE INHIBITOR) [Suspect]
     Dosage: UNK
     Dates: start: 20100324, end: 20100404
  5. LASIX [Concomitant]
     Route: 042
  6. SPIRONOLACTONE [Concomitant]
     Route: 048
  7. UREPEARL [Concomitant]
     Dosage: UNK
     Route: 061
     Dates: start: 20100311, end: 20100403
  8. LASIX [Concomitant]
     Route: 048

REACTIONS (3)
  - HEPATIC ENZYME INCREASED [None]
  - AMMONIA INCREASED [None]
  - HYPERTENSION [None]
